FAERS Safety Report 13760488 (Version 2)
Quarter: 2017Q3

REPORT INFORMATION
  Report Type: Spontaneous
  Country: US (occurrence: US)
  Receive Date: 20170717
  Receipt Date: 20170718
  Transmission Date: 20171127
  Serious: Yes (Other)
  Sender: FDA-Public Use
  Company Number: US-JNJFOC-20170709956

PATIENT
  Sex: Male
  Weight: 122.47 kg

DRUGS (3)
  1. XARELTO [Suspect]
     Active Substance: RIVAROXABAN
     Indication: DEEP VEIN THROMBOSIS
     Dosage: APR (UNSPECIFIED YEAR)
     Route: 048
  2. VITAMIN K2 [Concomitant]
     Active Substance: MENAQUINONE 6
     Indication: MINERAL SUPPLEMENTATION
     Route: 065
  3. XARELTO [Suspect]
     Active Substance: RIVAROXABAN
     Indication: PULMONARY EMBOLISM
     Dosage: APR (UNSPECIFIED YEAR)
     Route: 048

REACTIONS (2)
  - Back disorder [Unknown]
  - Pulmonary embolism [Not Recovered/Not Resolved]

NARRATIVE: CASE EVENT DATE: 2017
